FAERS Safety Report 14483747 (Version 2)
Quarter: 2018Q2

REPORT INFORMATION
  Report Type: Report from Study
  Country: CA (occurrence: CA)
  Receive Date: 20180205
  Receipt Date: 20180417
  Transmission Date: 20180711
  Serious: Yes (Hospitalization)
  Sender: FDA-Public Use
  Company Number: CA-ROCHE-2012524

PATIENT
  Age: 65 Year
  Sex: Male

DRUGS (2)
  1. ACTEMRA [Suspect]
     Active Substance: TOCILIZUMAB
     Indication: RHEUMATOID ARTHRITIS
     Route: 058
     Dates: start: 20170705
  2. ACTEMRA [Interacting]
     Active Substance: TOCILIZUMAB
     Route: 058
     Dates: start: 2017

REACTIONS (6)
  - Pain in extremity [Unknown]
  - Arthritis [Unknown]
  - Inflammation [Unknown]
  - Rheumatoid arthritis [Recovered/Resolved]
  - Arthralgia [Unknown]
  - Drug interaction [Unknown]

NARRATIVE: CASE EVENT DATE: 201711
